FAERS Safety Report 21580481 (Version 1)
Quarter: 2022Q4

REPORT INFORMATION
  Report Type: Spontaneous
  Country: US (occurrence: US)
  Receive Date: 20221110
  Receipt Date: 20221110
  Transmission Date: 20230112
  Serious: Yes (Other)
  Sender: FDA-Public Use
  Company Number: US-SA-SAC20221109000388

PATIENT
  Sex: Female
  Weight: 109 kg

DRUGS (1)
  1. AUBAGIO [Suspect]
     Active Substance: TERIFLUNOMIDE
     Indication: Multiple sclerosis
     Dosage: 1 DF QD
     Route: 048
     Dates: start: 20180918

REACTIONS (12)
  - Atrial fibrillation [Unknown]
  - Cardiac failure [Unknown]
  - Ventricular tachycardia [Unknown]
  - Fungal infection [Unknown]
  - Dysuria [Unknown]
  - Blister [Unknown]
  - Skin exfoliation [Unknown]
  - Incontinence [Unknown]
  - Malaise [Unknown]
  - Rhinorrhoea [Not Recovered/Not Resolved]
  - Headache [Unknown]
  - Hypoaesthesia [Unknown]
